FAERS Safety Report 9764520 (Version 2)
Quarter: 2013Q4

REPORT INFORMATION
  Report Type: Report from Study
  Country: DE (occurrence: DE)
  Receive Date: 20131217
  Receipt Date: 20131217
  Transmission Date: 20140711
  Serious: Yes (Hospitalization, Disabling)
  Sender: FDA-Public Use
  Company Number: DE-ROCHE-1297159

PATIENT
  Age: 2 Year
  Sex: Female
  Weight: 11.6 kg

DRUGS (45)
  1. CALCITRIOL [Suspect]
     Indication: PRODUCT USED FOR UNKNOWN INDICATION
     Dosage: SUSPENSION
     Route: 065
     Dates: start: 20110427
  2. CALCITRIOL [Suspect]
     Route: 065
     Dates: start: 20110427
  3. TACROLIMUS [Suspect]
     Indication: INFECTION
     Dosage: LAST DOSE PRIOR TO SAE: 17/JAN/2012
     Route: 048
     Dates: start: 20110510
  4. TACROLIMUS [Suspect]
     Dosage: LAST DOSE PRIOR TO SAE: 01/JAN/2012
     Route: 048
     Dates: start: 20110510
  5. URBASON [Suspect]
     Indication: PRODUCT USED FOR UNKNOWN INDICATION
     Dosage: LAST DOSE PROR TO SAE: 3/MAY/2011, 17/JAN/2012, 23 JAN 2012, 9 MAR 2012, 30 MAR 2012, 10/MAY/2012
     Route: 048
     Dates: start: 20110321
  6. URBASON [Suspect]
     Dosage: LAST DOSE PRIOR TO SAE: 01/JAN/2012
     Route: 042
     Dates: start: 20110321
  7. URBASON [Suspect]
     Dosage: LAST DOSE PRIOR TO SAE: 20 APR 2012, 10 MAY 2012, 20 MAY 2012
     Route: 048
     Dates: start: 20110321
  8. EVEROLIMUS [Suspect]
     Indication: INFECTION
     Dosage: LAST DOSE PRIOR TO SAE: 23 JAN 2012, 9 MAR 2012
     Route: 048
     Dates: start: 20120118
  9. EVEROLIMUS [Suspect]
     Dosage: LAST DOSE PRIOR TO SAE: 9/MAR/2012
     Route: 048
     Dates: start: 20120118
  10. EVEROLIMUS [Suspect]
     Dosage: LAST DOSE PRIOR TO SAE: 30/MAR/2012, 20 MAY 2012
     Route: 048
     Dates: start: 20120118
  11. EVEROLIMUS [Suspect]
     Dosage: LAST DOSE PRIOR TO SAE: 9/MAR/2012
     Route: 048
     Dates: start: 20120126
  12. EVEROLIMUS [Suspect]
     Dosage: LAST DOSE PRIOR TO SAE: 30/MAR/2012
     Route: 048
     Dates: start: 20120126
  13. EVEROLIMUS [Suspect]
     Dosage: LAST DOSE PRIOR TO SAE: 10/MAY/2012, 20/APR/2012, 26 JAN 2012
     Route: 048
     Dates: start: 20120118
  14. EVEROLIMUS [Suspect]
     Dosage: LAST DOSE PRIOR TO SAE: 10/MAY/2012
     Route: 048
     Dates: start: 20120126
  15. VALCYTE [Suspect]
     Indication: PROPHYLACTIC CHEMOTHERAPY
     Dosage: LAST DOSE PRIOR TO SAE: 3/MAY/2011
     Route: 048
     Dates: start: 20110325
  16. AZATHIOPRINE [Suspect]
     Indication: PROPHYLAXIS AGAINST TRANSPLANT REJECTION
     Dosage: LAT DOSE PRIOR TO SAE: 3/MAY/2011, 1/JAN/2012, 23/JAN/2012, 9/MAR/2012, 30/MAR/2012, 20/MAY/2012, 20
     Route: 048
     Dates: start: 20110325
  17. RANITIDIN [Concomitant]
     Dosage: LAST DOSE RIOR TO SAE: 3/MAY/2011, 1/JAN/2012, 20/APR/2012, 30/MAR/2012, 20/MAY/2012, 10/MAY/2012, 1
     Route: 048
     Dates: start: 20110322
  18. COTRIMOXAZOLE [Concomitant]
     Indication: PROPHYLACTIC CHEMOTHERAPY
     Dosage: EVERY OTHER DAY
     Route: 065
     Dates: start: 20110326
  19. FLUCONAZOLE [Concomitant]
     Indication: PROPHYLACTIC CHEMOTHERAPY
     Dosage: SUSPENSION, LAST DOSE PRIOR TOSAE: 03/MAY/2011, 01/JAN/2012, 20 APR 2012, 9/MAR/2012, 30/MAR/2012, 2
     Route: 048
     Dates: start: 20110411
  20. CHOLECALCIFEROL [Concomitant]
     Indication: PROPHYLAXIS
     Dosage: SUSPENSION, 17/JAN/2012, 23/JAN/2012
     Route: 048
     Dates: start: 20110418
  21. FERRO SANOL [Concomitant]
     Indication: NEPHROGENIC ANAEMIA
     Dosage: SUSPENSION
     Route: 065
     Dates: start: 20110427
  22. FERRO SANOL [Concomitant]
     Dosage: LAST DOSE PRIOR TO SAE: 30/MAR/2012
     Route: 048
     Dates: start: 20120316
  23. FLUDROCORTISON [Concomitant]
     Dosage: SUSPENSION, LAST DOSE PRIOR TO SAE: 1 JAN 2012, 17/JAN/2012, 9/MAR/2012, 30/MAR/2012, 10/MAY/2012, 2
     Route: 065
     Dates: start: 20110628
  24. FLUDROCORTISON [Concomitant]
     Dosage: SUSPENSION, LAST DOSE PRIOR TO SAE: 01/JAN/2012
     Route: 048
     Dates: start: 20110628
  25. FLUDROCORTISON [Concomitant]
     Dosage: LAST DOSE PRIOR TO SAE: 20 APR 2012
     Route: 048
     Dates: start: 20110628
  26. KEPINOL [Concomitant]
     Dosage: LAST DOSE PRIOR TO SAE: 16/JAN/2012, 17/JAN/2012, 31/DEC/2011
     Route: 048
     Dates: start: 20110526
  27. KEPINOL [Concomitant]
     Dosage: EVERY OTHER DAY, LAST DOSE PRIOR TO SAE: 20 APR 2012
     Route: 048
     Dates: start: 20110526
  28. KEPINOL [Concomitant]
     Dosage: EVERY OTHER DAY, LAST DOSE PRIOR TO SAE: 31/DEC/2011, 20/MAY/2012, 9/MAR/2012, , 29 MAR 2012, 10/MAY
     Route: 048
     Dates: start: 20110326
  29. KEPINOL [Concomitant]
     Dosage: EVERY OTHER DAY, LAST DOSE PRIOR TO SAE: 9/MAR/2012
     Route: 048
     Dates: start: 20120126
  30. AMOXICLAV [Concomitant]
     Dosage: LAST DOSE PRIOR TOSAE: 03/MAY/2011
     Route: 048
     Dates: start: 20110421
  31. NEORECORMON [Concomitant]
     Dosage: LAST DOSE PRIOR TO SAE: 26/DEC/2011, 18 APR 2012, 23/JAN/2012, 10/MAY/2012
     Route: 030
     Dates: start: 20110905
  32. NEORECORMON [Concomitant]
     Dosage: LAST DOSE PRIOR TO SAE: 9/MAR/2012, 30/MAR/2012, 26 MAR 2012
     Route: 065
     Dates: start: 20110905
  33. ATACAND [Concomitant]
     Indication: HYPERTENSION
     Route: 048
     Dates: start: 20111223
  34. ATACAND [Concomitant]
     Route: 048
     Dates: start: 20111223
  35. AMLODIPIN [Concomitant]
     Dosage: LAST DOSE PRIOR TO SAE: 23 JAN 2012, 17/JAN/2012
     Route: 048
     Dates: start: 20120102
  36. TENORMIN [Concomitant]
     Indication: HYPERTENSION
     Route: 048
     Dates: start: 20120110
  37. DELIX (GERMANY) [Concomitant]
     Indication: HYPERTENSION
     Route: 048
     Dates: start: 20120111
  38. CYCLOSPORINE MICROEMULSION [Concomitant]
     Dosage: LAST DOSE PRIOR TOSAE: 03/MAY/2011
     Route: 048
     Dates: start: 20110404
  39. FERRO SANOL [Concomitant]
     Dosage: LAST DOSE PRIOR TOSAE: 03/MAY/2011
     Route: 048
     Dates: start: 20110427
  40. FERRO SANOL [Concomitant]
     Dosage: LAST DOSE PRIOR TOSAE: 20/MAY/2012, 10/MAY/2012, 30/MAR/2012
     Route: 048
     Dates: start: 20120316
  41. NYSTATIN [Concomitant]
     Indication: PROPHYLACTIC CHEMOTHERAPY
     Route: 048
     Dates: start: 20120101, end: 20120101
  42. CEFUROXIM [Concomitant]
     Route: 042
     Dates: start: 20120101, end: 20120101
  43. CHOLECALCIFEROL [Concomitant]
     Dosage: LAST DOSE PRIOR TO SAE: 3/MAY/2011, 20 APR 2012, 20/MAY/2012, 9/MAR/2012, 17/JAN/2012, 30/MAR/2012
     Route: 048
     Dates: start: 20110418
  44. CALCITRIOL [Concomitant]
     Dosage: LAST DOSE PRIOR TO SAE: 3/MAY/2011, 30/MAR/2012, 9/MAR/2012, 20/MAY/2012, 10/MAY/2012, 23/JAN/2012
     Route: 048
     Dates: start: 20110427
  45. FERRO SANOL [Concomitant]
     Dosage: LAST DOSE PRIOR TO SAE: 20 APR 2012
     Route: 048
     Dates: start: 20120316

REACTIONS (9)
  - Pyelonephritis [Recovered/Resolved]
  - Ureteral stent removal [Recovered/Resolved]
  - Lower respiratory tract infection [Recovered/Resolved]
  - Biopsy [Recovered/Resolved]
  - Epstein-Barr virus infection [Not Recovered/Not Resolved]
  - Pneumocystis jirovecii pneumonia [Recovering/Resolving]
  - Post transplant lymphoproliferative disorder [Recovered/Resolved]
  - Gastroenteritis [Recovered/Resolved]
  - Pneumonia [Recovered/Resolved]
